FAERS Safety Report 11885599 (Version 1)
Quarter: 2016Q1

REPORT INFORMATION
  Report Type: Spontaneous
  Country: NL (occurrence: NL)
  Receive Date: 20160104
  Receipt Date: 20160104
  Transmission Date: 20160526
  Serious: Yes (Other)
  Sender: FDA-Public Use
  Company Number: NL-TEVA-621357ACC

PATIENT
  Age: 57 Year
  Sex: Male

DRUGS (1)
  1. METHOTREXATE [Suspect]
     Active Substance: METHOTREXATE
     Indication: PRODUCT USED FOR UNKNOWN INDICATION
     Dosage: 7.5MG, ONCE/WEEK
     Route: 048
     Dates: start: 20130930, end: 20131205

REACTIONS (1)
  - Glaucoma [Recovered/Resolved]

NARRATIVE: CASE EVENT DATE: 20131205
